FAERS Safety Report 26208505 (Version 1)
Quarter: 2025Q4

REPORT INFORMATION
  Report Type: Spontaneous
  Country: CN (occurrence: CN)
  Receive Date: 20251229
  Receipt Date: 20251229
  Transmission Date: 20260117
  Serious: Yes (Hospitalization)
  Sender: BAYER HEALTHCARE PHARMACEUTICALS INC.
  Company Number: CN-BAYER-2025A169272

PATIENT
  Age: 64 Year
  Sex: Male
  Weight: 78.8 kg

DRUGS (3)
  1. GLUCOBAY [Interacting]
     Active Substance: ACARBOSE
     Indication: Diabetes mellitus
     Dosage: 50 MG, TID
     Route: 048
     Dates: start: 20200501, end: 20251220
  2. REPAGLINIDE [Interacting]
     Active Substance: REPAGLINIDE
     Indication: Diabetes mellitus
     Dosage: 2 MG, TID
     Route: 048
     Dates: start: 20200501, end: 20251218
  3. REPAGLINIDE [Interacting]
     Active Substance: REPAGLINIDE
     Indication: Diabetes mellitus
     Dosage: 1 MG, TID
     Route: 048
     Dates: start: 20251219, end: 20251220

REACTIONS (3)
  - Hypoglycaemic coma [Recovering/Resolving]
  - Confusional state [Recovering/Resolving]
  - Dysarthria [Recovering/Resolving]

NARRATIVE: CASE EVENT DATE: 20251218
